FAERS Safety Report 22532026 (Version 3)
Quarter: 2023Q4

REPORT INFORMATION
  Report Type: Report from Study
  Country: US (occurrence: US)
  Receive Date: 20230607
  Receipt Date: 20231207
  Transmission Date: 20240110
  Serious: Yes (Death, Other)
  Sender: FDA-Public Use
  Company Number: US-PFIZER INC-PV202300099356

PATIENT

DRUGS (2)
  1. DOCETAXEL [Suspect]
     Active Substance: DOCETAXEL\DOCETAXEL ANHYDROUS
     Indication: Non-small cell lung cancer recurrent
     Dosage: 75 MG/M2, EVERY 3 WEEKS, ON DAY 1
     Route: 042
  2. TRAMETINIB [Suspect]
     Active Substance: TRAMETINIB
     Indication: Non-small cell lung cancer recurrent
     Dosage: 2 MG, CYCLIC, DAILY STARTING ON DAY 1 OF CYCLE 1

REACTIONS (1)
  - Sepsis [Fatal]
